FAERS Safety Report 12057621 (Version 1)
Quarter: 2016Q1

REPORT INFORMATION
  Report Type: Spontaneous
  Country: US (occurrence: US)
  Receive Date: 20160209
  Receipt Date: 20160209
  Transmission Date: 20160526
  Serious: Yes (Death, Other)
  Sender: FDA-Public Use
  Company Number: US-TAKEDA-TPA2012A01307

PATIENT

DRUGS (15)
  1. FELODIPINE. [Concomitant]
     Active Substance: FELODIPINE
     Dosage: 5 MG, UNK
  2. GLUCOPHAGE [Concomitant]
     Active Substance: METFORMIN HYDROCHLORIDE
     Dosage: 500 MG, UNK
     Dates: start: 200008, end: 200104
  3. FUROSEMIDE. [Concomitant]
     Active Substance: FUROSEMIDE
     Dosage: 20 MG, UNK
     Dates: end: 20070926
  4. PLAVIX [Concomitant]
     Active Substance: CLOPIDOGREL BISULFATE
     Dosage: 75 MG, UNK
  5. ACTOS [Suspect]
     Active Substance: PIOGLITAZONE HYDROCHLORIDE
     Dosage: 30 MG, UNK
     Route: 048
     Dates: start: 200409, end: 200510
  6. LIPITOR [Concomitant]
     Active Substance: ATORVASTATIN CALCIUM
     Dosage: 80 MG, UNK
     Dates: end: 20070926
  7. FOSINOPRIL [Concomitant]
     Active Substance: FOSINOPRIL
     Dosage: 40 MG, UNK
  8. ACTOS [Suspect]
     Active Substance: PIOGLITAZONE HYDROCHLORIDE
     Dosage: 30 MG, UNK
     Route: 048
     Dates: start: 200508, end: 200511
  9. AVANDIA [Concomitant]
     Active Substance: ROSIGLITAZONE MALEATE
     Dosage: 4 MG, UNK
     Dates: start: 200005
  10. BYETTA [Concomitant]
     Active Substance: EXENATIDE
     Dosage: 5 MG, UNK
     Dates: start: 200512, end: 200610
  11. ACTOS [Suspect]
     Active Substance: PIOGLITAZONE HYDROCHLORIDE
     Indication: TYPE 2 DIABETES MELLITUS
     Dosage: 45 MG, UNK
     Route: 048
     Dates: start: 200404, end: 200408
  12. AVODART [Concomitant]
     Active Substance: DUTASTERIDE
     Dosage: 0.5 MG, UNK
  13. HUMALOG [Concomitant]
     Active Substance: INSULIN LISPRO
     Dates: end: 20070926
  14. LISPRO [Concomitant]
     Active Substance: INSULIN LISPRO
     Dosage: UNK
     Dates: start: 2002
  15. GLARGINE [Concomitant]
     Dosage: UNK
     Dates: start: 200812, end: 201112

REACTIONS (4)
  - Death [Fatal]
  - Cystitis [Unknown]
  - Bladder cancer [Unknown]
  - Urinary tract infection [Unknown]

NARRATIVE: CASE EVENT DATE: 2007
